FAERS Safety Report 12334552 (Version 2)
Quarter: 2016Q2

REPORT INFORMATION
  Report Type: Spontaneous
  Country: CA (occurrence: CA)
  Receive Date: 20160504
  Receipt Date: 20160603
  Transmission Date: 20160815
  Serious: Yes (Other)
  Sender: FDA-Public Use
  Company Number: CA-TEVA-657154USA

PATIENT
  Age: 17 Year
  Sex: Male

DRUGS (2)
  1. TEVA-DIVALPROEX [Suspect]
     Active Substance: DIVALPROEX SODIUM
     Indication: PRODUCT USED FOR UNKNOWN INDICATION
     Dosage: STRENGTH: 250MG; SINCE MANY YEARS; 750MG MORNING+ 625MG NIGHT
     Route: 065
  2. TEVA-DIVALPROEX [Suspect]
     Active Substance: DIVALPROEX SODIUM
     Indication: PRODUCT USED FOR UNKNOWN INDICATION
     Dosage: STRENGTH: 125MG; SINCE MANY YEARS; 750MG MORNING+ 625MG NIGHT
     Route: 065

REACTIONS (2)
  - Hypoparathyroidism [Unknown]
  - Hypocalcaemia [Unknown]
